FAERS Safety Report 6287158-7 (Version None)
Quarter: 2009Q3

REPORT INFORMATION
  Report Type: 
  Country: None (occurrence: None)
  Receive Date: 20090728
  Receipt Date: 20090715
  Transmission Date: 20100115
  Serious: Yes (Hospitalization)
  Sender: FDA-Public Use
  Company Number: US-LLY01-US200611002819

PATIENT
  Sex: Male
  Weight: 79.818 kg

DRUGS (24)
  1. ZYPREXA [Suspect]
     Indication: BIPOLAR DISORDER
     Dosage: 5 MG, EACH MORNING
     Route: 048
     Dates: start: 20010202, end: 20020516
  2. ZYPREXA [Suspect]
     Dosage: 10 MG, EACH EVENING
     Dates: end: 20010410
  3. ZYPREXA [Suspect]
     Dosage: 15 MG, EACH EVENING
     Dates: start: 20010410
  4. ZYPREXA [Suspect]
     Dosage: 10 MG, 2/D
  5. ZYPREXA [Suspect]
     Dosage: 5 MG, EACH MORNING
     Dates: start: 20011017
  6. ZYPREXA [Suspect]
     Dosage: 10 MG, UNK
     Dates: start: 20011017
  7. LISINOPRIL [Concomitant]
     Dosage: 5 MG, 4/D
  8. ATENOLOL [Concomitant]
     Dosage: 12.5 MG, DAILY (1/D)
  9. ASPIRIN [Concomitant]
     Dosage: 325 MG, DAILY (1/D)
  10. FOLATE [Concomitant]
     Dosage: 1 MG, DAILY (1/D)
  11. VITAMIN E [Concomitant]
  12. ATORVASTATIN [Concomitant]
     Indication: HYPERLIPIDAEMIA
     Dosage: 80 MG, DAILY (1/D)
     Dates: end: 20020122
  13. ATORVASTATIN [Concomitant]
     Dosage: 40 MG, DAILY (1/D)
     Dates: start: 20020122
  14. TRAZODONE [Concomitant]
     Dosage: 225 MG, EACH EVENING
  15. TRAZODONE [Concomitant]
     Dosage: 75 MG, AS NEEDED
  16. TRAZODONE [Concomitant]
     Dosage: 450 MG, UNK
     Dates: start: 20020601
  17. CELEBREX [Concomitant]
     Dosage: 100 MG, AS NEEDED
  18. DEPAKOTE [Concomitant]
     Dosage: 500 MG, 2/D
  19. DEPAKOTE [Concomitant]
     Dosage: 750 MG, UNK
     Dates: start: 20010522
  20. DEPAKOTE [Concomitant]
     Dosage: 250 MG, EACH MORNING
  21. DEPAKOTE [Concomitant]
     Dosage: 500 MG, EACH EVENING
  22. NIASPAN [Concomitant]
     Indication: HYPERLIPIDAEMIA
     Dosage: 1000 MG, DAILY (1/D)
     Dates: start: 20011001, end: 20020122
  23. DEPO-MEDROL [Concomitant]
     Dates: start: 20040101
  24. METOPROLOL SUCCINATE [Concomitant]
     Dates: start: 20050101

REACTIONS (15)
  - AKATHISIA [None]
  - ANGIOPLASTY [None]
  - ANKLE FRACTURE [None]
  - ANXIETY [None]
  - BLOOD GLUCOSE INCREASED [None]
  - DIABETES MELLITUS [None]
  - DRY SKIN [None]
  - FATIGUE [None]
  - HYPEROSMOLAR STATE [None]
  - HYPOGLYCAEMIA [None]
  - METABOLIC DISORDER [None]
  - NEUROLOGICAL SYMPTOM [None]
  - SOMNOLENCE [None]
  - WEIGHT DECREASED [None]
  - WEIGHT INCREASED [None]
